FAERS Safety Report 10165834 (Version 1)
Quarter: 2014Q2

REPORT INFORMATION
  Report Type: Spontaneous
  Country: US (occurrence: US)
  Receive Date: 20140510
  Receipt Date: 20140510
  Transmission Date: 20141212
  Serious: No
  Sender: FDA-Public Use
  Company Number: US-BRISTOL-MYERS SQUIBB COMPANY-19976901

PATIENT
  Age: 63 Year
  Sex: Male
  Weight: 101.13 kg

DRUGS (3)
  1. BYDUREON [Suspect]
     Indication: TYPE 2 DIABETES MELLITUS
     Dosage: 8 DOSES
  2. INSULIN [Suspect]
  3. VICTOZA [Suspect]

REACTIONS (3)
  - Injection site mass [Unknown]
  - Blood glucose increased [Unknown]
  - Injection site pain [Unknown]
